FAERS Safety Report 14831460 (Version 2)
Quarter: 2018Q3

REPORT INFORMATION
  Report Type: Report from Study
  Country: IT (occurrence: IT)
  Receive Date: 20180501
  Receipt Date: 20180819
  Transmission Date: 20181010
  Serious: Yes (Hospitalization)
  Sender: FDA-Public Use
  Company Number: IT-BAXTER-2018BAX012235

PATIENT
  Age: 42 Year
  Sex: Female

DRUGS (3)
  1. SODIO CLORURO BAXTER S.P.A 0,9% [Suspect]
     Active Substance: SODIUM CHLORIDE
     Indication: FLUID REPLACEMENT
  2. SODIO CLORURO BAXTER S.P.A 0,9% [Suspect]
     Active Substance: SODIUM CHLORIDE
     Indication: MEDICATION ERROR
  3. SODIO CLORURO BAXTER S.P.A 0,9% [Suspect]
     Active Substance: SODIUM CHLORIDE
     Indication: IRRIGATION THERAPY
     Route: 042
     Dates: start: 20180221, end: 20180221

REACTIONS (1)
  - Haematuria [Recovered/Resolved]

NARRATIVE: CASE EVENT DATE: 20180222
